FAERS Safety Report 4325332-7 (Version None)
Quarter: 2004Q1

REPORT INFORMATION
  Report Type: 
  Country: None (occurrence: None)
  Receive Date: 20040324
  Receipt Date: 20040309
  Transmission Date: 20041129
  Serious: Yes (Death)
  Sender: FDA-Public Use
  Company Number: JP_040202585

PATIENT
  Age: 59 Year
  Sex: Female
  Weight: 46 kg

DRUGS (10)
  1. ZYPREXA [Suspect]
     Indication: SCHIZOPHRENIA, PARANOID TYPE
     Dosage: 10 MG/1 DAY
     Dates: start: 20020812, end: 20030813
  2. MAGNESIUM OXIDE [Concomitant]
  3. AKINETON [Concomitant]
  4. HALOPERIDOL [Concomitant]
  5. PURSENNIDE (SENNA LEAF) [Concomitant]
  6. LEXOTAN (BROMAZEPAM) [Concomitant]
  7. LASIX [Concomitant]
  8. ARTANE [Concomitant]
  9. VEGETAMIN B [Concomitant]
  10. ALOSENN [Concomitant]

REACTIONS (2)
  - CEREBROVASCULAR ACCIDENT [None]
  - SUBARACHNOID HAEMORRHAGE [None]
